FAERS Safety Report 15041812 (Version 2)
Quarter: 2020Q3

REPORT INFORMATION
  Report Type: Report from Study
  Country: HK (occurrence: HK)
  Receive Date: 20180621
  Receipt Date: 20180723
  Transmission Date: 20201105
  Serious: Yes (Hospitalization)
  Sender: FDA-Public Use
  Company Number: HK-ROCHE-2137852

PATIENT
  Age: 72 Year
  Sex: Male
  Weight: 67.3 kg

DRUGS (7)
  1. SENNA [Concomitant]
     Active Substance: SENNA LEAF\SENNOSIDES\SENNOSIDES A AND B
     Indication: CONSTIPATION
     Dosage: PRN (AS NEEDED)
     Route: 048
     Dates: start: 20180510, end: 20180605
  2. NEXIUM [Concomitant]
     Active Substance: ESOMEPRAZOLE MAGNESIUM
     Indication: ABDOMINAL DISCOMFORT
     Route: 048
     Dates: start: 20180411
  3. TEARS NATURALE FREE [Concomitant]
     Active Substance: DEXTRAN 70\HYPROMELLOSE 2910 (4000 MPA.S)
     Indication: DRY EYE
     Dosage: PRN (AS NEEDED)
     Route: 047
     Dates: start: 20180711
  4. PANADOL (HONG KONG) [Concomitant]
     Indication: PYREXIA
     Dosage: PRN (AS NEEDED)
     Route: 048
     Dates: start: 20180427, end: 20180505
  5. DOCUSATE SODIUM. [Concomitant]
     Active Substance: DOCUSATE SODIUM
     Indication: CONSTIPATION
     Dosage: PRN (AS NEEDED)
     Route: 048
     Dates: start: 20180510, end: 20180605
  6. ALECTINIB. [Suspect]
     Active Substance: ALECTINIB
     Indication: NON-SMALL CELL LUNG CANCER
     Dosage: DATE OF MOST RECENT DOSE OF ALECTINIB (600 MG) PRIOR TO SAE: 07/JUN/2018
     Route: 048
     Dates: start: 20180427
  7. NEXIUM [Concomitant]
     Active Substance: ESOMEPRAZOLE MAGNESIUM
     Dosage: PRN (AS NEEDED)
     Route: 048
     Dates: start: 20180502, end: 20180524

REACTIONS (1)
  - Psoriasis [Not Recovered/Not Resolved]

NARRATIVE: CASE EVENT DATE: 20180601
